FAERS Safety Report 5886369-X (Version None)
Quarter: 2008Q3

REPORT INFORMATION
  Report Type: 
  Country: None (occurrence: None)
  Receive Date: 20080917
  Receipt Date: 20080910
  Transmission Date: 20090109
  Serious: Yes (Hospitalization)
  Sender: FDA-Public Use
  Company Number: JP-ASTRAZENECA-2008SE04127

PATIENT
  Sex: Male
  Weight: 76 kg

DRUGS (4)
  1. BLOPRESS [Suspect]
     Indication: HYPERTENSION
     Route: 048
     Dates: start: 20080712, end: 20080725
  2. BLOPRESS [Suspect]
     Route: 048
     Dates: start: 20080726, end: 20080821
  3. SAIBOKU-TO [Concomitant]
     Route: 048
     Dates: start: 20080703, end: 20080821
  4. GOREI-SAN [Concomitant]
     Route: 048
     Dates: start: 20080703, end: 20080821

REACTIONS (1)
  - LIVER DISORDER [None]
